FAERS Safety Report 4353647-5 (Version None)
Quarter: 2004Q2

REPORT INFORMATION
  Report Type: 
  Country: None (occurrence: None)
  Receive Date: 20040430
  Receipt Date: 20040414
  Transmission Date: 20050107
  Serious: Yes (Other)
  Sender: FDA-Public Use
  Company Number: US-SHR-03-017173

PATIENT
  Age: 59 Year
  Sex: Female
  Weight: 70.7 kg

DRUGS (18)
  1. BETASERON [Suspect]
     Indication: MULTIPLE SCLEROSIS RELAPSE
     Dosage: 8 MIU, EVERY 2D, SUBCUTANEOUS
     Route: 058
     Dates: start: 20030319
  2. WELLBUTRIN [Concomitant]
  3. ELAVIL [Concomitant]
  4. VALIUM [Concomitant]
  5. NEURONTIN [Concomitant]
  6. AMANTADINE HCL [Concomitant]
  7. LEVOTHYROXINE SODIUM [Concomitant]
  8. LOTENSIN [Concomitant]
  9. ESTRATES HS (ESTARTES ESTERIFIED, METHYLTETOSETERONE) PATCH [Concomitant]
  10. XENICAL  /GFR/ (ORLISTAT) [Concomitant]
  11. VITAMIN B-12 [Concomitant]
  12. DARVON [Concomitant]
  13. BACLOFEN [Concomitant]
  14. ASPIRIN ^BAYER^ (ACETYLSALICYCLIC ACID) [Concomitant]
  15. IBUPROFEN [Concomitant]
  16. SINGULAIR (MONTELUKAST SODUUM) [Concomitant]
  17. ALBUTEROL [Concomitant]
  18. XANAX [Concomitant]

REACTIONS (2)
  - ASTHMA [None]
  - MITRAL VALVE INCOMPETENCE [None]
